FAERS Safety Report 6235920-9 (Version None)
Quarter: 2009Q2

REPORT INFORMATION
  Report Type: 
  Country: None (occurrence: None)
  Receive Date: 20090617
  Receipt Date: 20090617
  Transmission Date: 20091009
  Serious: Yes (Other)
  Sender: FDA-Public Use
  Company Number: None

PATIENT
  Age: 69 Year
  Sex: Female
  Weight: 49.8957 kg

DRUGS (4)
  1. ZICAM ZICAM [Suspect]
     Indication: NASOPHARYNGITIS
     Dosage: SWAB 2 TIMES DAILY NASAL SWAB 1 TIME DAILY NASAL
     Route: 045
     Dates: start: 20090327, end: 20090329
  2. ZICAM ZICAM [Suspect]
     Indication: PYREXIA
     Dosage: SWAB 2 TIMES DAILY NASAL SWAB 1 TIME DAILY NASAL
     Route: 045
     Dates: start: 20090327, end: 20090329
  3. ZICAM ZICAM [Suspect]
     Indication: NASOPHARYNGITIS
     Dosage: SWAB 2 TIMES DAILY NASAL SWAB 1 TIME DAILY NASAL
     Route: 045
     Dates: start: 20090401, end: 20090401
  4. ZICAM ZICAM [Suspect]
     Indication: PYREXIA
     Dosage: SWAB 2 TIMES DAILY NASAL SWAB 1 TIME DAILY NASAL
     Route: 045
     Dates: start: 20090401, end: 20090401

REACTIONS (1)
  - ANOSMIA [None]
